FAERS Safety Report 4919307-4 (Version None)
Quarter: 2006Q1

REPORT INFORMATION
  Report Type: 
  Country: None (occurrence: None)
  Receive Date: 20060216
  Receipt Date: 20060208
  Transmission Date: 20060701
  Serious: Yes (Hospitalization)
  Sender: FDA-Public Use
  Company Number: 2006-00496

PATIENT
  Age: 44 Year
  Sex: Male
  Weight: 136.1 kg

DRUGS (5)
  1. TESTOSTERONE CYPIONATE [Suspect]
     Indication: BLOOD TESTOSTERONE DECREASED
     Dosage: 200 MG EVERY 2 WEEKS, INTRAMUSCULAR
     Route: 030
     Dates: start: 20051220, end: 20060131
  2. DIOVAN [Concomitant]
  3. TOPROL-XL [Concomitant]
  4. MULTIPLE VITAMINS (VITAMIN B NOS, TOCOPHEROL, RETINOL, ERGOCALCIFEROL) [Concomitant]
  5. FISH OIL (FISH OIL) [Concomitant]

REACTIONS (7)
  - CONVERSION DISORDER [None]
  - DYSKINESIA [None]
  - MUSCLE CONTRACTIONS INVOLUNTARY [None]
  - MUSCLE RIGIDITY [None]
  - MUSCULOSKELETAL STIFFNESS [None]
  - TESTICULAR PAIN [None]
  - TREMOR [None]
